FAERS Safety Report 18216736 (Version 1)
Quarter: 2020Q3

REPORT INFORMATION
  Report Type: Spontaneous
  Country: US (occurrence: US)
  Receive Date: 20200901
  Receipt Date: 20200901
  Transmission Date: 20201103
  Serious: No
  Sender: FDA-Public Use
  Company Number: NVSC2020US238633

PATIENT

DRUGS (8)
  1. XELJANZ [Concomitant]
     Active Substance: TOFACITINIB CITRATE
     Indication: PLATELET DISORDER
  2. XELJANZ [Concomitant]
     Active Substance: TOFACITINIB CITRATE
     Indication: HAEMATOCRIT ABNORMAL
  3. METHOTREXATE. [Suspect]
     Active Substance: METHOTREXATE
     Indication: PRODUCT USED FOR UNKNOWN INDICATION
     Dosage: UNK
     Route: 065
     Dates: start: 2014
  4. XELJANZ [Concomitant]
     Active Substance: TOFACITINIB CITRATE
     Indication: HAEMOGLOBIN ABNORMAL
     Dosage: 20 MG, BID (10MG IN THE MORNING AND 10MG AT NIGHT)
     Route: 065
     Dates: start: 202006
  5. XELJANZ [Concomitant]
     Active Substance: TOFACITINIB CITRATE
     Indication: WHITE BLOOD CELL DISORDER
  6. CYCLOSPORINE. [Suspect]
     Active Substance: CYCLOSPORINE
     Indication: PRODUCT USED FOR UNKNOWN INDICATION
     Dosage: UNK
     Route: 065
  7. CYCLOPHOSPHAMIDE. [Suspect]
     Active Substance: CYCLOPHOSPHAMIDE
     Indication: PRODUCT USED FOR UNKNOWN INDICATION
     Dosage: UNK
     Route: 065
  8. XELJANZ [Concomitant]
     Active Substance: TOFACITINIB CITRATE
     Indication: RED BLOOD CELL ABNORMALITY

REACTIONS (1)
  - Drug ineffective [Unknown]
